FAERS Safety Report 26118981 (Version 1)
Quarter: 2025Q4

REPORT INFORMATION
  Report Type: Spontaneous
  Country: JP (occurrence: JP)
  Receive Date: 20251204
  Receipt Date: 20251204
  Transmission Date: 20260117
  Serious: Yes (Other)
  Sender: ROCHE
  Company Number: JP-CHUGAI-2025038982

PATIENT
  Age: 6 Decade
  Sex: Male

DRUGS (1)
  1. VABYSMO [Suspect]
     Active Substance: FARICIMAB-SVOA
     Indication: Neovascular age-related macular degeneration
     Dosage: 5.5 MILLILITER, ONCE/MONTH
     Route: 031
     Dates: start: 20250806, end: 20251106

REACTIONS (1)
  - Keratic precipitates [Recovered/Resolved]

NARRATIVE: CASE EVENT DATE: 20251106
